FAERS Safety Report 25418197 (Version 1)
Quarter: 2025Q2

REPORT INFORMATION
  Report Type: Spontaneous
  Country: US (occurrence: None)
  Receive Date: 20250609
  Receipt Date: 20250609
  Transmission Date: 20250717
  Serious: No
  Sender: FDA-CTU
  Company Number: None

PATIENT
  Age: 93 Year
  Sex: Female
  Weight: 90 kg

DRUGS (1)
  1. LUMASON [Suspect]
     Active Substance: SULFUR HEXAFLUORIDE
     Indication: Scan myocardial perfusion

REACTIONS (1)
  - Headache [None]

NARRATIVE: CASE EVENT DATE: 20250609
